FAERS Safety Report 26017695 (Version 2)
Quarter: 2025Q4

REPORT INFORMATION
  Report Type: Report from Study
  Country: US (occurrence: US)
  Receive Date: 20251110
  Receipt Date: 20251113
  Transmission Date: 20260118
  Serious: No
  Sender: BAUSCH AND LOMB
  Company Number: US-BAUSCH-BH-2025-019805

PATIENT
  Age: 32 Year
  Sex: Female

DRUGS (2)
  1. XIFAXAN [Suspect]
     Active Substance: RIFAXIMIN
     Indication: Diarrhoea
     Route: 048
     Dates: end: 202510
  2. XIFAXAN [Suspect]
     Active Substance: RIFAXIMIN
     Dosage: 3 DOSES PER DAY
     Route: 048
     Dates: end: 202510

REACTIONS (4)
  - Feeding disorder [Recovered/Resolved]
  - Blood urine present [Not Recovered/Not Resolved]
  - Diarrhoea [Recovering/Resolving]
  - Therapy interrupted [Unknown]

NARRATIVE: CASE EVENT DATE: 20251001
